FAERS Safety Report 4288883-X (Version None)
Quarter: 2004Q1

REPORT INFORMATION
  Report Type: 
  Country: None (occurrence: None)
  Receive Date: 20040206
  Receipt Date: 20040206
  Transmission Date: 20041129
  Serious: Yes (Death)
  Sender: FDA-Public Use
  Company Number: None

PATIENT
  Age: 82 Year
  Sex: Male
  Weight: 68.8 kg

DRUGS (11)
  1. NATRECOR [Suspect]
     Indication: CARDIAC FAILURE CONGESTIVE
     Dosage: 2MCXG/KG BOLUS INTRAVENOUS
     Route: 042
     Dates: start: 20031207, end: 20031207
  2. MG SULFATE [Concomitant]
  3. PROMETHAZINE [Concomitant]
  4. DOPAMINE [Concomitant]
  5. NITROGLYCERIN [Concomitant]
  6. HYDROMORPHONE HCL [Concomitant]
  7. MORPHINE [Concomitant]
  8. LIDOCAINE [Concomitant]
  9. INSULIN [Concomitant]
  10. EPINEPHRINE [Concomitant]
  11. FAMOTIDINE [Concomitant]

REACTIONS (1)
  - MEDICATION ERROR [None]
